FAERS Safety Report 5211964-0 (Version None)
Quarter: 2007Q1

REPORT INFORMATION
  Report Type: 
  Country: None (occurrence: None)
  Receive Date: 20070118
  Receipt Date: 20070115
  Transmission Date: 20070707
  Serious: Yes (Other)
  Sender: FDA-Public Use
  Company Number: CA-GLAXOSMITHKLINE-A0628549A

PATIENT
  Sex: Male
  Weight: 142 kg

DRUGS (2)
  1. AVANDIA [Suspect]
  2. LIPIDIL [Suspect]

REACTIONS (2)
  - DRUG INTERACTION [None]
  - HIGH DENSITY LIPOPROTEIN DECREASED [None]
